FAERS Safety Report 5306099-2 (Version None)
Quarter: 2007Q2

REPORT INFORMATION
  Report Type: 
  Country: None (occurrence: None)
  Receive Date: 20070424
  Receipt Date: 20060919
  Transmission Date: 20071010
  Serious: Yes (Death)
  Sender: FDA-Public Use
  Company Number: US-BRISTOL-MYERS SQUIBB COMPANY-13514880

PATIENT
  Age: 64 Year
  Sex: Female
  Weight: 71 kg

DRUGS (1)
  1. PARAPLATIN [Suspect]
     Indication: NON-SMALL CELL LUNG CANCER
     Dosage: 1ST TREATMENT ON 28-JUN-2006; 2ND TREATMENT ON 25-JUL-2006
     Dates: start: 20060823, end: 20060823

REACTIONS (1)
  - MALIGNANT NEOPLASM PROGRESSION [None]
